FAERS Safety Report 24364938 (Version 1)
Quarter: 2024Q3

REPORT INFORMATION
  Report Type: Report from Study
  Country: US (occurrence: US)
  Receive Date: 20240926
  Receipt Date: 20240926
  Transmission Date: 20241016
  Serious: No
  Sender: ACADIA PHARMACEUTICALS
  Company Number: US-ACADIA PHARMACEUTICALS INC.-ACA-2024-PIM-005279

PATIENT
  Sex: Female

DRUGS (4)
  1. NUPLAZID [Suspect]
     Active Substance: PIMAVANSERIN TARTRATE
     Indication: Parkinson^s disease
     Dosage: 34 MILLIGRAM, QD
     Route: 048
     Dates: start: 20221109
  2. NUPLAZID [Suspect]
     Active Substance: PIMAVANSERIN TARTRATE
     Dosage: TAKE 1 CAPSULE BY MOUTH ON SUNDAY/ TUESDAY/ THURSDAY AND SATURDAY AND 2 CAPSULES BY MOUTH ON MONDAY/
     Route: 048
  3. ACYCLOVIR [Concomitant]
     Active Substance: ACYCLOVIR
     Dosage: 400 MILLIGRAM
  4. AMLODIPINE [Concomitant]
     Active Substance: AMLODIPINE BESYLATE
     Dosage: 5 MILLIGRAM

REACTIONS (3)
  - Inappropriate schedule of product administration [Unknown]
  - Overdose [Unknown]
  - Product dose omission issue [Unknown]
